FAERS Safety Report 5582597-1 (Version None)
Quarter: 2008Q1

REPORT INFORMATION
  Report Type: 
  Country: None (occurrence: None)
  Receive Date: 20080107
  Receipt Date: 20071221
  Transmission Date: 20080703
  Serious: Yes (Other)
  Sender: FDA-Public Use
  Company Number: CH-BAYER-200718606GPV

PATIENT
  Age: 27 Year
  Sex: Female

DRUGS (3)
  1. YASMIN [Suspect]
     Indication: CONTRACEPTION
     Route: 048
  2. LAMICTAL [Interacting]
     Indication: EPILEPSY
     Route: 048
     Dates: start: 20060101
  3. LYRICA [Concomitant]
     Indication: EPILEPSY
     Route: 048
     Dates: start: 20060101

REACTIONS (2)
  - DRUG INTERACTION [None]
  - METRORRHAGIA [None]
